FAERS Safety Report 23914775 (Version 1)
Quarter: 2024Q2

REPORT INFORMATION
  Report Type: Spontaneous
  Country: US (occurrence: None)
  Receive Date: 20240528
  Receipt Date: 20240528
  Transmission Date: 20240716
  Serious: Yes (Hospitalization)
  Sender: FDA-Public Use
  Company Number: None

PATIENT
  Age: 49 Year
  Sex: Female

DRUGS (11)
  1. TERIFLUNOMIDE [Suspect]
     Active Substance: TERIFLUNOMIDE
     Indication: Multiple sclerosis
     Dosage: FREQUENCY : DAILY;?
     Route: 048
     Dates: start: 20230414
  2. AUBAGIO [Concomitant]
     Active Substance: TERIFLUNOMIDE
  3. BACLOFEN [Concomitant]
  4. CALCIUM [Concomitant]
  5. CRANBERRY [Concomitant]
     Active Substance: CRANBERRY
  6. CYMBALTA [Concomitant]
     Active Substance: DULOXETINE HYDROCHLORIDE
  7. ESTRADIOL [Concomitant]
  8. KP VITAMIN D [Concomitant]
  9. LORATADINE [Concomitant]
  10. LORAZEPAM [Concomitant]
  11. LYRICA [Concomitant]
     Active Substance: PREGABALIN

REACTIONS (2)
  - Therapy interrupted [None]
  - Disease recurrence [None]

NARRATIVE: CASE EVENT DATE: 20240501
